FAERS Safety Report 9358262 (Version 1)
Quarter: 2013Q2

REPORT INFORMATION
  Report Type: Spontaneous
  Country: US (occurrence: US)
  Receive Date: 20130620
  Receipt Date: 20130620
  Transmission Date: 20140414
  Serious: No
  Sender: FDA-Public Use
  Company Number: US-JNJFOC-20130603545

PATIENT
  Age: 50 Year
  Sex: Male
  Weight: 131.54 kg

DRUGS (8)
  1. DURAGESIC [Suspect]
     Indication: INTERVERTEBRAL DISC PROTRUSION
     Route: 062
     Dates: start: 201305
  2. WATSON FENTANYL TRANSDERMAL SYSTEM [Suspect]
     Indication: INTERVERTEBRAL DISC PROTRUSION
     Route: 062
     Dates: end: 2013
  3. FENTANYL TRANSDERMAL SYSTEM [Suspect]
     Indication: INTERVERTEBRAL DISC PROTRUSION
     Route: 062
  4. OXYCODONE [Concomitant]
     Indication: BREAKTHROUGH PAIN
     Route: 048
     Dates: start: 2002
  5. LOTREL [Concomitant]
     Indication: BLOOD PRESSURE
     Dosage: 10-20 MG
     Route: 048
     Dates: start: 2002
  6. TOPROL [Concomitant]
     Indication: BLOOD PRESSURE
     Dosage: 10-20 MG
     Route: 048
  7. SYNTHROID [Concomitant]
     Indication: THYROID DISORDER
     Dosage: 10-20 MG
     Route: 048
  8. ALLOPURINOL [Concomitant]
     Indication: GOUT
     Dosage: 10-20 MG
     Route: 048

REACTIONS (2)
  - Product quality issue [Not Recovered/Not Resolved]
  - Wrong technique in drug usage process [Not Recovered/Not Resolved]
